FAERS Safety Report 12945118 (Version 1)
Quarter: 2016Q4

REPORT INFORMATION
  Report Type: Spontaneous
  Country: US (occurrence: US)
  Receive Date: 20161115
  Receipt Date: 20161115
  Transmission Date: 20170207
  Serious: Yes (Other)
  Sender: FDA-Public Use
  Company Number: US-ALLERGAN-1675955US

PATIENT
  Age: 79 Year
  Sex: Female

DRUGS (1)
  1. LUMIGAN [Suspect]
     Active Substance: BIMATOPROST
     Indication: PRODUCT USED FOR UNKNOWN INDICATION
     Dosage: UNK
     Route: 047
     Dates: start: 2011

REACTIONS (7)
  - Aphasia [Recovered/Resolved]
  - Cerebrovascular accident [Unknown]
  - Visual acuity reduced [Not Recovered/Not Resolved]
  - Paralysis [Recovered/Resolved]
  - Language disorder [Recovered/Resolved]
  - Confusional state [Not Recovered/Not Resolved]
  - Diabetes mellitus [Not Recovered/Not Resolved]

NARRATIVE: CASE EVENT DATE: 2015
